FAERS Safety Report 25681402 (Version 1)
Quarter: 2025Q3

REPORT INFORMATION
  Report Type: Spontaneous
  Country: US (occurrence: None)
  Receive Date: 20250814
  Receipt Date: 20250814
  Transmission Date: 20251020
  Serious: Yes (Death)
  Sender: FDA-CTU
  Company Number: None

PATIENT
  Age: 70 Year
  Sex: Male

DRUGS (1)
  1. COSENTYX [Suspect]
     Active Substance: SECUKINUMAB
     Dosage: 150 MG EVERY 4 WEEKS SUBCUTANEOUS?
     Route: 058
     Dates: start: 20200217

REACTIONS (1)
  - Diabetic complication [None]

NARRATIVE: CASE EVENT DATE: 20250717
